FAERS Safety Report 6421973-1 (Version None)
Quarter: 2009Q4

REPORT INFORMATION
  Report Type: 
  Country: None (occurrence: None)
  Receive Date: 20091030
  Receipt Date: 20091023
  Transmission Date: 20100525
  Serious: Yes (Hospitalization)
  Sender: FDA-Public Use
  Company Number: CO-MERCK-0910COL00002

PATIENT
  Age: 78 Year
  Sex: Female
  Weight: 68 kg

DRUGS (4)
  1. JANUVIA [Suspect]
     Indication: TYPE 2 DIABETES MELLITUS
     Route: 048
     Dates: start: 20070101, end: 20091001
  2. JANUVIA [Suspect]
     Route: 048
     Dates: start: 20091005
  3. IBUPROFEN [Concomitant]
     Route: 048
     Dates: start: 20090915, end: 20091001
  4. GLICLAZIDE [Concomitant]
     Indication: TYPE 2 DIABETES MELLITUS
     Route: 048

REACTIONS (2)
  - PANCREATIC DISORDER [None]
  - UPPER GASTROINTESTINAL HAEMORRHAGE [None]
